FAERS Safety Report 8185836-6 (Version None)
Quarter: 2012Q1

REPORT INFORMATION
  Report Type: 
  Country: None (occurrence: None)
  Receive Date: 20120305
  Receipt Date: 20120223
  Transmission Date: 20120608
  Serious: Yes (Hospitalization)
  Sender: FDA-Public Use
  Company Number: US-ASTRAZENECA-2012SE13185

PATIENT
  Age: 81 Year
  Sex: Male
  Weight: 101.2 kg

DRUGS (10)
  1. ALBUTEROL [Concomitant]
     Dosage: 90 MCG, 2 PUFFS EVERY 6 HOURS AS NEEDED
  2. LASIX [Concomitant]
  3. SIMVASTATIN [Concomitant]
  4. SINGULAIR [Concomitant]
  5. THEOPHYLLINE XR [Concomitant]
  6. PULMICORT [Suspect]
     Route: 055
     Dates: end: 20120101
  7. ADVAIR DISKUS 100/50 [Concomitant]
     Dosage: 500-50, 1 PUFF TWICE DAILY
  8. DUONEB [Concomitant]
     Dosage: 3/0.5 MG, 3 ML EVERY 6 HOURS
  9. PLAVIX [Concomitant]
  10. DIGOXIN [Concomitant]

REACTIONS (5)
  - COUGH [None]
  - OFF LABEL USE [None]
  - ASTHMA [None]
  - DRUG ADMINISTRATION ERROR [None]
  - WHEEZING [None]
